FAERS Safety Report 7502202-4 (Version None)
Quarter: 2011Q2

REPORT INFORMATION
  Report Type: 
  Country: None (occurrence: None)
  Receive Date: 20110525
  Receipt Date: 20110521
  Transmission Date: 20111010
  Serious: Yes (Other)
  Sender: FDA-Public Use
  Company Number: US-PFIZER INC-2010106171

PATIENT
  Sex: Female
  Weight: 55.329 kg

DRUGS (12)
  1. DARVOCET [Concomitant]
     Indication: PAIN
     Dosage: 100 MG, AS NEEDED
  2. CHANTIX [Suspect]
     Indication: SMOKING CESSATION THERAPY
     Dosage: 0.5 MG, DAILY
     Route: 048
     Dates: start: 20100817
  3. SOMA [Concomitant]
     Indication: PAIN
     Dosage: 350 MG, AS NEEDED
  4. DARVOCET [Concomitant]
     Indication: BACK INJURY
  5. SOMA [Concomitant]
     Indication: BACK INJURY
  6. DEPAKOTE [Concomitant]
     Indication: AFFECTIVE DISORDER
     Dosage: UNK
     Route: 048
  7. DARVOCET [Concomitant]
     Indication: MUSCLE SPASMS
  8. SOMA [Concomitant]
     Indication: MUSCLE SPASMS
  9. KLONOPIN [Concomitant]
     Indication: BIPOLAR DISORDER
     Dosage: UNK
     Route: 048
  10. CHANTIX [Suspect]
     Dosage: UNK
     Route: 048
     Dates: start: 20110101
  11. DEPAKOTE [Concomitant]
     Indication: BIPOLAR DISORDER
  12. CLONAZEPAM [Concomitant]
     Indication: AFFECTIVE DISORDER
     Dosage: UNK

REACTIONS (8)
  - NAUSEA [None]
  - VOMITING [None]
  - CONVULSION [None]
  - GAIT DISTURBANCE [None]
  - HEADACHE [None]
  - LUNG NEOPLASM MALIGNANT [None]
  - STRESS [None]
  - ASTHENIA [None]
